FAERS Safety Report 10750651 (Version 1)
Quarter: 2015Q1

REPORT INFORMATION
  Report Type: Spontaneous
  Country: US (occurrence: None)
  Receive Date: 20150128
  Receipt Date: 20150128
  Transmission Date: 20150721
  Serious: Yes (Other)
  Sender: FDA-Public Use
  Company Number: A14-064-C

PATIENT
  Age: 11 Year
  Sex: Male

DRUGS (2)
  1. CENT T,G,RW,WD MX [Suspect]
     Active Substance: ALLERGENIC EXTRACTS
     Indication: IMMUNOMODULATORY THERAPY
     Dates: start: 20141007
  2. MITE MX, D, MOLD MX [Suspect]
     Active Substance: ALLERGENIC EXTRACTS
     Indication: IMMUNOMODULATORY THERAPY
     Dates: start: 20141007

REACTIONS (4)
  - Sneezing [None]
  - Hypoxia [None]
  - Nasal congestion [None]
  - Wheezing [None]

NARRATIVE: CASE EVENT DATE: 20141007
